FAERS Safety Report 4829582-2 (Version None)
Quarter: 2005Q4

REPORT INFORMATION
  Report Type: 
  Country: None (occurrence: None)
  Receive Date: 20051116
  Receipt Date: 20050614
  Transmission Date: 20060501
  Serious: Yes (Other)
  Sender: FDA-Public Use
  Company Number: NO-ROCHE-407628

PATIENT
  Age: 32 Year
  Sex: Female

DRUGS (4)
  1. XENICAL [Suspect]
     Indication: OBESITY
     Route: 048
     Dates: start: 20041115, end: 20050517
  2. PARACET [Concomitant]
     Route: 048
  3. PARALGIN FORTE [Concomitant]
     Route: 048
  4. BRUFEN [Concomitant]
     Route: 048
     Dates: start: 20050315, end: 20050315

REACTIONS (3)
  - ANAL FISSURE [None]
  - COLITIS ULCERATIVE [None]
  - ECZEMA [None]
